FAERS Safety Report 4772908-9 (Version None)
Quarter: 2005Q3

REPORT INFORMATION
  Report Type: 
  Country: None (occurrence: None)
  Receive Date: 20050916
  Receipt Date: 20050912
  Transmission Date: 20060218
  Serious: Yes (Death)
  Sender: FDA-Public Use
  Company Number: 200510594BFR

PATIENT
  Age: 81 Year
  Sex: Male

DRUGS (4)
  1. MOXIFLOXACIN HYDROCHLORIDE [Suspect]
     Indication: BRONCHITIS ACUTE
     Dosage: 400MG, QD, ORAL
     Route: 048
     Dates: start: 20050611
  2. COZAAR [Concomitant]
  3. ALLOPURINOL [Concomitant]
  4. BRONCHOKOD [Concomitant]

REACTIONS (5)
  - CARDIAC ARREST [None]
  - MYDRIASIS [None]
  - PYREXIA [None]
  - RESPIRATORY DISTRESS [None]
  - RHONCHI [None]
